FAERS Safety Report 20171524 (Version 3)
Quarter: 2022Q2

REPORT INFORMATION
  Report Type: Report from Study
  Country: AR (occurrence: AR)
  Receive Date: 20211210
  Receipt Date: 20220421
  Transmission Date: 20220720
  Serious: Yes (Other)
  Sender: FDA-Public Use
  Company Number: AR-NOVARTISPH-NVSC2020AR241136

PATIENT
  Age: 56 Year
  Sex: Female

DRUGS (3)
  1. COSENTYX [Suspect]
     Active Substance: SECUKINUMAB
     Indication: Ankylosing spondylitis
     Dosage: 150 MG, QMO
     Route: 058
     Dates: start: 20200101, end: 202009
  2. COSENTYX [Suspect]
     Active Substance: SECUKINUMAB
     Indication: Axial spondyloarthritis
     Dosage: 150 MG, QMO
     Route: 058
     Dates: start: 20200101
  3. COSENTYX [Suspect]
     Active Substance: SECUKINUMAB
     Dosage: 150 MG, QMO (STARTED ON FEB UNKNOWN YEAR)
     Route: 058

REACTIONS (17)
  - Haemorrhage [Unknown]
  - Fatigue [Unknown]
  - Inflammation [Unknown]
  - Blood pressure increased [Unknown]
  - Musculoskeletal discomfort [Unknown]
  - C-reactive protein increased [Unknown]
  - COVID-19 [Recovered/Resolved]
  - Arthritis [Recovering/Resolving]
  - Fall [Unknown]
  - Limb injury [Unknown]
  - Ligament rupture [Unknown]
  - C-reactive protein decreased [Unknown]
  - Malaise [Unknown]
  - Depressed mood [Unknown]
  - Pain [Not Recovered/Not Resolved]
  - Muscle strain [Not Recovered/Not Resolved]
  - Arthralgia [Unknown]

NARRATIVE: CASE EVENT DATE: 20210410
